FAERS Safety Report 15962679 (Version 1)
Quarter: 2019Q1

REPORT INFORMATION
  Report Type: Spontaneous
  Country: CA (occurrence: CA)
  Receive Date: 20190214
  Receipt Date: 20190214
  Transmission Date: 20190417
  Serious: Yes (Other)
  Sender: FDA-Public Use
  Company Number: CA-PFIZER INC-2019061243

PATIENT
  Age: 75 Year
  Sex: Female

DRUGS (4)
  1. LETROZOLE. [Suspect]
     Active Substance: LETROZOLE
     Indication: BREAST CANCER METASTATIC
     Dosage: UNK
     Route: 065
  2. IBRANCE [Suspect]
     Active Substance: PALBOCICLIB
     Indication: BREAST CANCER METASTATIC
     Dosage: UNK
     Route: 065
  3. PAMIDRONATE DISODIUM. [Suspect]
     Active Substance: PAMIDRONATE DISODIUM
     Indication: BREAST CANCER METASTATIC
     Dosage: UNK, MONTHLY
     Route: 065
  4. ZOMETA [Suspect]
     Active Substance: ZOLEDRONIC ACID
     Indication: BREAST CANCER METASTATIC
     Dosage: UNK
     Route: 065

REACTIONS (11)
  - Solar lentigo [Unknown]
  - Hepatic cancer [Unknown]
  - Diverticulum intestinal [Unknown]
  - Granuloma [Unknown]
  - Colitis [Unknown]
  - Cholelithiasis [Unknown]
  - Radiation fibrosis [Unknown]
  - Second primary malignancy [Unknown]
  - Angiopathy [Unknown]
  - Atelectasis [Unknown]
  - Aortic arteriosclerosis [Unknown]
